FAERS Safety Report 7637182-4 (Version None)
Quarter: 2011Q3

REPORT INFORMATION
  Report Type: 
  Country: None (occurrence: None)
  Receive Date: 20110726
  Receipt Date: 20110712
  Transmission Date: 20111222
  Serious: Yes (Hospitalization)
  Sender: FDA-Public Use
  Company Number: PHHY2011KR62511

PATIENT

DRUGS (1)
  1. TEGRETOL-XR [Suspect]
     Dosage: UNK UKN, UNK
     Route: 048
     Dates: start: 20090901

REACTIONS (12)
  - THIRST [None]
  - PYREXIA [None]
  - URTICARIA PIGMENTOSA [None]
  - ANXIETY [None]
  - NERVOUSNESS [None]
  - DYSPNOEA [None]
  - TOXIC EPIDERMAL NECROLYSIS [None]
  - URTICARIA [None]
  - DECREASED APPETITE [None]
  - BLISTER [None]
  - RASH PUSTULAR [None]
  - GENERALISED OEDEMA [None]
